FAERS Safety Report 4289266-9 (Version None)
Quarter: 2004Q1

REPORT INFORMATION
  Report Type: 
  Country: None (occurrence: None)
  Receive Date: 20040206
  Receipt Date: 20040130
  Transmission Date: 20041129
  Serious: Yes (Other)
  Sender: FDA-Public Use
  Company Number: 2002-09-1976

PATIENT
  Age: 46 Year
  Sex: Male
  Weight: 68.0396 kg

DRUGS (3)
  1. INTRON A [Suspect]
     Dosage: SUBCUTANEOUS
     Route: 058
     Dates: end: 20020412
  2. REBETOL [Suspect]
     Dosage: ORAL
     Dates: end: 20020419
  3. ALCOHOL [Suspect]

REACTIONS (6)
  - ALCOHOL POISONING [None]
  - CONDITION AGGRAVATED [None]
  - DEPRESSION [None]
  - HEADACHE [None]
  - IRRITABILITY [None]
  - MURDER [None]
